FAERS Safety Report 26173495 (Version 1)
Quarter: 2025Q4

REPORT INFORMATION
  Report Type: Spontaneous
  Country: EU (occurrence: EU)
  Receive Date: 20251218
  Receipt Date: 20251218
  Transmission Date: 20260118
  Serious: Yes (Other)
  Sender: BIOGEN
  Company Number: EU-BIOGEN-2095811

PATIENT
  Age: 43 Year
  Sex: Female

DRUGS (2)
  1. SKYCLARYS [Suspect]
     Active Substance: OMAVELOXOLONE
     Indication: Friedreich^s ataxia
  2. SKYCLARYS [Suspect]
     Active Substance: OMAVELOXOLONE

REACTIONS (4)
  - Ventricular dysfunction [Unknown]
  - Friedreich^s ataxia [Unknown]
  - Ventricular tachycardia [Unknown]
  - Atrial flutter [Unknown]

NARRATIVE: CASE EVENT DATE: 20250701
